FAERS Safety Report 21627628 (Version 7)
Quarter: 2024Q4

REPORT INFORMATION
  Report Type: Spontaneous
  Country: US (occurrence: US)
  Receive Date: 20221122
  Receipt Date: 20241202
  Transmission Date: 20250114
  Serious: Yes (Other)
  Sender: PFIZER
  Company Number: US-PFIZER INC-PV202200070371

PATIENT
  Age: 64 Year
  Sex: Male
  Weight: 108.86 kg

DRUGS (8)
  1. SOMAVERT [Suspect]
     Active Substance: PEGVISOMANT
     Indication: Acromegaly
     Dosage: 15 MG, 2X/WEEK (EVERY WEDNESDAY AND SATURDAY OF THE WEEK)
  2. SOMAVERT [Suspect]
     Active Substance: PEGVISOMANT
     Dosage: 15 MG, 2X/WEEK (EVERY WEDNESDAY AND SATURDAY OF THE WEEK)
     Route: 058
     Dates: start: 202209
  3. SOMAVERT [Suspect]
     Active Substance: PEGVISOMANT
     Dosage: 15 MG, 2X/WEEK (EVERY WEDNESDAY AND SATURDAY OF THE WEEK)
     Dates: start: 20221026
  4. SOMAVERT [Suspect]
     Active Substance: PEGVISOMANT
     Dosage: UNK
  5. SOMAVERT [Suspect]
     Active Substance: PEGVISOMANT
     Dosage: 15 MG, 2X/WEEK (EVERY WEDNESDAY AND SATURDAY OF THE WEEK)
     Route: 058
     Dates: start: 202210
  6. SOMAVERT [Suspect]
     Active Substance: PEGVISOMANT
     Dosage: 15MG, 5 DAYS A WEEK
  7. SOMAVERT [Suspect]
     Active Substance: PEGVISOMANT
     Dosage: 15MGS - 2 DAYS PER WEEK - SUB Q
     Route: 058
  8. MYCAPSSA [Concomitant]
     Active Substance: OCTREOTIDE
     Dosage: TAKES TWO 20MG CAPSULES IN MORNING AND TWO 20MG CAPSULES AT NIGHT

REACTIONS (9)
  - Shoulder operation [Unknown]
  - Pancreatitis [Unknown]
  - Cholecystectomy [Unknown]
  - Product storage error [Unknown]
  - Off label use [Unknown]
  - Device difficult to use [Unknown]
  - Poor quality device used [Unknown]
  - Needle issue [Unknown]
  - Constipation [Unknown]

NARRATIVE: CASE EVENT DATE: 20220101
